FAERS Safety Report 7926648-5 (Version None)
Quarter: 2011Q4

REPORT INFORMATION
  Report Type: 
  Country: None (occurrence: None)
  Receive Date: 20111118
  Receipt Date: 20110711
  Transmission Date: 20120403
  Serious: Yes (Other)
  Sender: FDA-Public Use
  Company Number: US-BAYER-201030756NA

PATIENT
  Age: 56 Year
  Sex: Female

DRUGS (3)
  1. NORVASC [Concomitant]
     Dosage: 3 MG, QD
  2. NEXAVAR [Suspect]
     Indication: RENAL CELL CARCINOMA
     Dosage: 400 MG, BID
     Route: 048
     Dates: start: 20100810, end: 20100801
  3. NEXAVAR [Suspect]
     Dosage: 400 MG, BID
     Route: 048
     Dates: start: 20100801

REACTIONS (12)
  - ABNORMAL LOSS OF WEIGHT [None]
  - BLOOD PRESSURE SYSTOLIC INCREASED [None]
  - DYSPEPSIA [None]
  - DIARRHOEA [None]
  - VOMITING [None]
  - PAIN IN EXTREMITY [None]
  - ABDOMINAL DISTENSION [None]
  - FOOD INTOLERANCE [None]
  - SKIN LESION [None]
  - HYPERKERATOSIS [None]
  - BLISTER [None]
  - RASH PAPULAR [None]
